FAERS Safety Report 23793732 (Version 1)
Quarter: 2024Q2

REPORT INFORMATION
  Report Type: Spontaneous
  Country: US (occurrence: US)
  Receive Date: 20240429
  Receipt Date: 20240429
  Transmission Date: 20240715
  Serious: No
  Sender: FDA-Public Use
  Company Number: US-TEVA-VS-3182710

PATIENT

DRUGS (1)
  1. PROCARDIA XL [Suspect]
     Active Substance: NIFEDIPINE
     Indication: Product used for unknown indication
     Route: 065

REACTIONS (1)
  - Adverse drug reaction [Unknown]
